FAERS Safety Report 5797894-4 (Version None)
Quarter: 2008Q3

REPORT INFORMATION
  Report Type: 
  Country: None (occurrence: None)
  Receive Date: 20080702
  Receipt Date: 20080626
  Transmission Date: 20090109
  Serious: Yes (Other)
  Sender: FDA-Public Use
  Company Number: CA-RB-002200-08

PATIENT
  Sex: Female

DRUGS (8)
  1. SUBOXONE [Suspect]
     Route: 048
     Dates: start: 20080610, end: 20080610
  2. SUBOXONE [Suspect]
     Route: 048
     Dates: start: 20080609, end: 20080609
  3. SUBOXONE [Suspect]
     Route: 048
     Dates: start: 20080611, end: 20080611
  4. SUBOXONE [Suspect]
     Route: 048
     Dates: start: 20080612, end: 20080612
  5. SUBOXONE [Suspect]
     Route: 048
     Dates: start: 20080613, end: 20080615
  6. SUBOXONE [Suspect]
     Route: 048
     Dates: start: 20080616
  7. CELEBREX [Concomitant]
     Indication: DRUG USE FOR UNKNOWN INDICATION
     Dosage: UNKNOWN DOSING INFORMATION.
  8. COCAINE [Suspect]
     Dosage: UNKNOWN DOSING INFORMATION.
     Route: 065
     Dates: start: 20080612, end: 20080613

REACTIONS (14)
  - ANXIETY [None]
  - BALANCE DISORDER [None]
  - CRYING [None]
  - DEPRESSION [None]
  - DIZZINESS [None]
  - DRUG ABUSE [None]
  - FORMICATION [None]
  - HYPERVIGILANCE [None]
  - INSOMNIA [None]
  - NECK PAIN [None]
  - PANIC REACTION [None]
  - PAROSMIA [None]
  - SUICIDAL IDEATION [None]
  - TIC [None]
